FAERS Safety Report 17707278 (Version 2)
Quarter: 2020Q2

REPORT INFORMATION
  Report Type: Spontaneous
  Country: FR (occurrence: FR)
  Receive Date: 20200424
  Receipt Date: 20200507
  Transmission Date: 20200714
  Serious: Yes (Other)
  Sender: FDA-Public Use
  Company Number: FR-ALLERGAN-2016503US

PATIENT
  Sex: Male

DRUGS (8)
  1. APROKAM [Suspect]
     Active Substance: CEFUROXIME SODIUM
     Indication: CATARACT
     Dosage: UNK
     Dates: start: 20200309, end: 20200309
  2. DEXAFREE [Suspect]
     Active Substance: DEXAMETHASONE SODIUM PHOSPHATE
     Dosage: 1 DROP, BID, DURING 7 DAYS
     Route: 047
     Dates: start: 202003
  3. AZYTER [Suspect]
     Active Substance: AZITHROMYCIN ANHYDROUS
     Indication: CATARACT
     Dosage: 2 DROP, QD
     Route: 047
     Dates: start: 20200309, end: 20200312
  4. FLURBIPROFEN SODIUM UNK [Suspect]
     Active Substance: FLURBIPROFEN SODIUM
     Indication: CATARACT
     Dosage: 1 DROP, TID, FOR ONE MONTH
     Route: 047
     Dates: start: 202003
  5. DEXAFREE [Suspect]
     Active Substance: DEXAMETHASONE SODIUM PHOSPHATE
     Indication: CATARACT
     Dosage: 1 DROP, QD, DURING 7 DAYS
     Route: 047
  6. DEXAFREE [Suspect]
     Active Substance: DEXAMETHASONE SODIUM PHOSPHATE
     Dosage: 1 DROP, TID, DURING 15 DAYS
     Route: 047
     Dates: start: 202003, end: 202003
  7. SILODYX [Concomitant]
     Active Substance: SILODOSIN
     Indication: PROSTATOMEGALY
     Dosage: UNK
     Route: 065
  8. TADENAN [Concomitant]
     Active Substance: PYGEUM
     Indication: PROSTATOMEGALY
     Dosage: UNK
     Route: 065

REACTIONS (4)
  - Product preparation error [Unknown]
  - Non-infectious endophthalmitis [Recovering/Resolving]
  - Product prescribing issue [Unknown]
  - Product use in unapproved indication [Unknown]

NARRATIVE: CASE EVENT DATE: 202003
